FAERS Safety Report 14820842 (Version 1)
Quarter: 2018Q2

REPORT INFORMATION
  Report Type: Spontaneous
  Country: US (occurrence: US)
  Receive Date: 20180427
  Receipt Date: 20180427
  Transmission Date: 20180711
  Serious: No
  Sender: FDA-Public Use
  Company Number: US-BAUSCH-BL-2017-013576

PATIENT
  Age: 49 Year
  Sex: Female
  Weight: 65.83 kg

DRUGS (1)
  1. ZYCLARA [Suspect]
     Active Substance: IMIQUIMOD
     Indication: ACTINIC KERATOSIS
     Dosage: USED ONCE DAILY ON FOREHEAD FOR ABOUT TWO WEEKS AND THEN ON CHEEKS ONCE DAILY FOR ONE OR TWO DAYS
     Route: 065
     Dates: end: 201705

REACTIONS (1)
  - Skin lesion [Recovered/Resolved]

NARRATIVE: CASE EVENT DATE: 20170503
